FAERS Safety Report 20801804 (Version 1)
Quarter: 2022Q2

REPORT INFORMATION
  Report Type: Spontaneous
  Country: FR (occurrence: FR)
  Receive Date: 20220509
  Receipt Date: 20220509
  Transmission Date: 20220721
  Serious: Yes (Other)
  Sender: FDA-Public Use
  Company Number: None

PATIENT
  Age: 62 Year
  Sex: Female

DRUGS (12)
  1. VANCOMYCIN [Suspect]
     Active Substance: VANCOMYCIN
     Indication: Infection
     Dosage: 2 G, 1X/DAY
     Route: 041
     Dates: start: 20200926, end: 20201006
  2. PIPERACILLIN [Suspect]
     Active Substance: PIPERACILLIN
     Indication: Sepsis
     Dosage: 4G / 500MG 2 / DAY
     Route: 041
     Dates: start: 20200926, end: 20201022
  3. LINEZOLID [Suspect]
     Active Substance: LINEZOLID
     Indication: Sepsis
     Route: 041
     Dates: start: 20201022, end: 20201027
  4. OCTREOTIDE [Suspect]
     Active Substance: OCTREOTIDE
     Indication: Fistula
     Route: 041
     Dates: start: 20200924, end: 20201025
  5. MYCAMINE [Suspect]
     Active Substance: MICAFUNGIN SODIUM
     Indication: Candida sepsis
     Route: 041
     Dates: start: 20201006, end: 20201022
  6. PANTOPRAZOLE [Suspect]
     Active Substance: PANTOPRAZOLE
     Indication: Product used for unknown indication
     Route: 048
     Dates: start: 20200924, end: 20201025
  7. FLUCONAZOLE [Suspect]
     Active Substance: FLUCONAZOLE
     Indication: Sepsis
     Route: 041
     Dates: start: 20201022, end: 20201028
  8. TAZOBACTAM [Suspect]
     Active Substance: TAZOBACTAM
     Indication: Sepsis
     Dosage: 4G / 500MG 2 / DAY
     Route: 041
     Dates: start: 20200926, end: 20201022
  9. MEROPENEM [Suspect]
     Active Substance: MEROPENEM
     Indication: Sepsis
     Route: 041
     Dates: start: 20201006, end: 20201020
  10. ONDANSETRON [Suspect]
     Active Substance: ONDANSETRON
     Indication: Nausea
     Route: 041
     Dates: start: 20201022, end: 20201103
  11. MOTILIUM [Suspect]
     Active Substance: DOMPERIDONE
     Indication: Nausea
     Dosage: IF NECESSARY
     Route: 048
     Dates: start: 20201022
  12. PIPERACILLIN SODIUM\TAZOBACTAM SODIUM [Suspect]
     Active Substance: PIPERACILLIN SODIUM\TAZOBACTAM SODIUM
     Indication: Product used for unknown indication
     Dates: start: 20200926, end: 20201006

REACTIONS (3)
  - Rash morbilliform [Not Recovered/Not Resolved]
  - Dermatitis exfoliative generalised [Not Recovered/Not Resolved]
  - Product use issue [Unknown]

NARRATIVE: CASE EVENT DATE: 20200926
